FAERS Safety Report 24632462 (Version 2)
Quarter: 2024Q4

REPORT INFORMATION
  Report Type: Report from Study
  Country: MY (occurrence: MY)
  Receive Date: 20241118
  Receipt Date: 20241120
  Transmission Date: 20250114
  Serious: Yes (Death, Other)
  Sender: DAIICHI
  Company Number: MY-DSJP-DS-2024-109131-MY

PATIENT
  Sex: Female

DRUGS (1)
  1. ENHERTU [Suspect]
     Active Substance: FAM-TRASTUZUMAB DERUXTECAN-NXKI
     Indication: Product used for unknown indication
     Dosage: 300 MILLIGRAM, Q3W
     Route: 065

REACTIONS (1)
  - Death [Fatal]
